FAERS Safety Report 8389078-0 (Version None)
Quarter: 2012Q2

REPORT INFORMATION
  Report Type: 
  Country: None (occurrence: None)
  Receive Date: 20120528
  Receipt Date: 20120521
  Transmission Date: 20120825
  Serious: Yes (Other)
  Sender: FDA-Public Use
  Company Number: PHHY2012DE020715

PATIENT
  Sex: Female
  Weight: 45 kg

DRUGS (3)
  1. GILENYA [Suspect]
     Indication: RELAPSING-REMITTING MULTIPLE SCLEROSIS
     Dosage: 0.5 MG, QD
     Route: 048
     Dates: start: 20120122, end: 20120319
  2. BACLOFEN [Concomitant]
     Indication: MUSCLE SPASTICITY
     Dosage: 75 MG, QD
  3. LEVOTHYROXINE SODIUM [Concomitant]
     Dosage: 62.5 UG, QD

REACTIONS (4)
  - LEUKOPENIA [None]
  - HYPERTENSIVE CRISIS [None]
  - BLOOD PRESSURE FLUCTUATION [None]
  - LYMPHOPENIA [None]
